FAERS Safety Report 8815825 (Version 3)
Quarter: 2012Q4

REPORT INFORMATION
  Report Type: 
  Country: JP (occurrence: JP)
  Receive Date: 20120928
  Receipt Date: 20121107
  Transmission Date: 20130627
  Serious: Yes (Other)
  Sender: FDA-Public Use
  Company Number: JP-B.I. PHARMACEUTICALS,INC./RIDGEFIELD-2012-EU-04611GD

PATIENT
  Age: 59 Year
  Sex: Male
  Weight: 58 kg

DRUGS (4)
  1. DABIGATRAN ETEXILATE [Suspect]
     Indication: ATRIAL FIBRILLATION
     Dosage: 300 mg
     Route: 048
     Dates: start: 20110712, end: 20110829
  2. MAINTATE [Concomitant]
     Dosage: 2.5 mg
     Route: 048
  3. OLMETEC [Concomitant]
     Dosage: 20 mg
     Route: 048
  4. BEPRICOR [Concomitant]
     Dosage: 100 mg
     Route: 048

REACTIONS (1)
  - Myocardial infarction [Not Recovered/Not Resolved]
